FAERS Safety Report 4646717-5 (Version None)
Quarter: 2005Q2

REPORT INFORMATION
  Report Type: 
  Country: None (occurrence: None)
  Receive Date: 20050427
  Receipt Date: 20050426
  Transmission Date: 20051028
  Serious: Yes (Other)
  Sender: FDA-Public Use
  Company Number: US-GLAXOSMITHKLINE-A0555850A

PATIENT
  Age: 79 Year
  Sex: Female

DRUGS (7)
  1. AVANDIA [Suspect]
     Dosage: 4MG TWICE PER DAY
     Route: 048
     Dates: start: 20050101
  2. AVANDAMET [Suspect]
     Route: 048
     Dates: start: 20040101, end: 20050101
  3. GLYBURIDE [Suspect]
     Dosage: 2.5MG PER DAY
     Route: 048
     Dates: start: 20050423, end: 20050423
  4. PRINIVIL [Concomitant]
  5. TENORMIN [Concomitant]
  6. SYNTHROID [Concomitant]
  7. ARANESP [Concomitant]

REACTIONS (9)
  - ASTHENIA [None]
  - BACK PAIN [None]
  - DYSPNOEA [None]
  - FATIGUE [None]
  - HYPERHIDROSIS [None]
  - INSOMNIA [None]
  - NORMOCHROMIC NORMOCYTIC ANAEMIA [None]
  - PERIPHERAL COLDNESS [None]
  - TREMOR [None]
